FAERS Safety Report 24363291 (Version 1)
Quarter: 2024Q3

REPORT INFORMATION
  Report Type: Spontaneous
  Country: DE (occurrence: DE)
  Receive Date: 20240925
  Receipt Date: 20240925
  Transmission Date: 20241016
  Serious: Yes (Other)
  Sender: MYLAN
  Company Number: None

PATIENT
  Age: 63 Year
  Sex: Male
  Weight: 100 kg

DRUGS (1)
  1. CANDESARTAN [Suspect]
     Active Substance: CANDESARTAN
     Indication: Hypertension
     Dosage: 16 MILLIGRAM, QOD (ONE CANDESARTAN EVERY 2ND DAY)
     Route: 065
     Dates: start: 20211117

REACTIONS (9)
  - Epidermal necrosis [Recovered/Resolved]
  - Dysaesthesia [Recovered/Resolved with Sequelae]
  - Paraesthesia [Not Recovered/Not Resolved]
  - Skin fissures [Recovered/Resolved]
  - Pain in extremity [Recovered/Resolved]
  - Feeling hot [Recovered/Resolved]
  - Extremity necrosis [Recovered/Resolved]
  - Inflammation [Recovered/Resolved]
  - Erythema [Recovered/Resolved with Sequelae]

NARRATIVE: CASE EVENT DATE: 20211206
